FAERS Safety Report 21355094 (Version 2)
Quarter: 2022Q4

REPORT INFORMATION
  Report Type: Spontaneous
  Country: US (occurrence: None)
  Receive Date: 20220920
  Receipt Date: 20221102
  Transmission Date: 20230113
  Serious: Yes (Other)
  Sender: FDA-Public Use
  Company Number: 2022A317784

PATIENT

DRUGS (1)
  1. EVUSHELD [Suspect]
     Active Substance: CILGAVIMAB\TIXAGEVIMAB
     Route: 030
     Dates: start: 2022, end: 2022

REACTIONS (3)
  - White blood cell count increased [Unknown]
  - T-lymphocyte count increased [Unknown]
  - CD4 lymphocytes increased [Unknown]
